FAERS Safety Report 18940295 (Version 1)
Quarter: 2021Q1

REPORT INFORMATION
  Report Type: Spontaneous
  Country: US (occurrence: US)
  Receive Date: 20210225
  Receipt Date: 20210225
  Transmission Date: 20210420
  Serious: No
  Sender: FDA-Public Use
  Company Number: US-ASTRAZENECA-2021A019100

PATIENT
  Sex: Female
  Weight: 108.9 kg

DRUGS (2)
  1. INSULIN [Concomitant]
     Active Substance: INSULIN NOS
     Indication: DIABETES MELLITUS
  2. FASENRA [Suspect]
     Active Substance: BENRALIZUMAB
     Indication: ASTHMA
     Dosage: SINCE APPROXIMATELY 2 YEARS AGO
     Route: 058
     Dates: start: 2019

REACTIONS (5)
  - Weight increased [Not Recovered/Not Resolved]
  - Nasopharyngitis [Not Recovered/Not Resolved]
  - Choking [Not Recovered/Not Resolved]
  - Multiple allergies [Not Recovered/Not Resolved]
  - Feeling abnormal [Not Recovered/Not Resolved]
